FAERS Safety Report 5832794-2 (Version None)
Quarter: 2008Q3

REPORT INFORMATION
  Report Type: 
  Country: None (occurrence: None)
  Receive Date: 20080804
  Receipt Date: 20080721
  Transmission Date: 20090109
  Serious: Yes (Death, Hospitalization)
  Sender: FDA-Public Use
  Company Number: PHHO2000ZA00050

PATIENT
  Sex: Male
  Weight: 51.4 kg

DRUGS (3)
  1. RAD 666 RAD+ [Suspect]
     Dosage: 0.75 MG, BID
     Route: 048
     Dates: start: 19990809
  2. MEDROL [Suspect]
  3. NEORAL [Suspect]

REACTIONS (19)
  - ACIDOSIS [None]
  - ACUTE RESPIRATORY DISTRESS SYNDROME [None]
  - BRONCHOPNEUMONIA [None]
  - CARDIO-RESPIRATORY ARREST [None]
  - CEREBRAL ATROPHY [None]
  - DEATH [None]
  - DEHYDRATION [None]
  - DELIRIUM [None]
  - DIALYSIS [None]
  - DIARRHOEA [None]
  - HAEMOLYTIC URAEMIC SYNDROME [None]
  - IMMUNOSUPPRESSION [None]
  - LOWER RESPIRATORY TRACT INFECTION [None]
  - MICROANGIOPATHIC HAEMOLYTIC ANAEMIA [None]
  - PSEUDOMONAL SEPSIS [None]
  - RENAL FAILURE [None]
  - RESPIRATORY FAILURE [None]
  - SEPSIS [None]
  - THROMBOTIC THROMBOCYTOPENIC PURPURA [None]
